FAERS Safety Report 21557761 (Version 1)
Quarter: 2022Q4

REPORT INFORMATION
  Report Type: Spontaneous
  Country: FR (occurrence: FR)
  Receive Date: 20221106
  Receipt Date: 20221106
  Transmission Date: 20230112
  Serious: Yes (Hospitalization, Other)
  Sender: FDA-Public Use
  Company Number: FR-ASTELLAS-2022US035783

PATIENT
  Age: 68 Year
  Sex: Female
  Weight: 42 kg

DRUGS (3)
  1. TACROLIMUS [Suspect]
     Active Substance: TACROLIMUS
     Indication: Immunosuppression
     Dosage: 4 MG, QD
     Route: 048
     Dates: start: 20161123, end: 20210610
  2. PREDNISONE [Concomitant]
     Active Substance: PREDNISONE
     Indication: Immunosuppression
     Dosage: UNK (5 UNK UNITS, TOTAL DAILY DOSE)
     Route: 065
     Dates: start: 20131117, end: 20210609
  3. PREDNISONE [Concomitant]
     Active Substance: PREDNISONE
     Dosage: UNK (20 UNK UNITS, TOTAL DAILY DOSE)
     Route: 065
     Dates: start: 20210610

REACTIONS (1)
  - Cholangiocarcinoma [Not Recovered/Not Resolved]

NARRATIVE: CASE EVENT DATE: 20210405
